FAERS Safety Report 6866292-4 (Version None)
Quarter: 2010Q2

REPORT INFORMATION
  Report Type: 
  Country: None (occurrence: None)
  Receive Date: 20100601
  Receipt Date: 20100325
  Transmission Date: 20101027
  Serious: Yes (Hospitalization)
  Sender: FDA-Public Use
  Company Number: US201003007834

PATIENT
  Sex: Female

DRUGS (3)
  1. BYETTA [Suspect]
     Dosage: 5 UG, DAILY (1/D) ; 10 UG, DAILY (1/D)
     Dates: start: 20090101, end: 20091001
  2. BYETTA [Suspect]
     Dosage: 5 UG, DAILY (1/D) ; 10 UG, DAILY (1/D)
     Dates: start: 20091001, end: 20100201
  3. EXENATIDE 5MCG PEN, DISPOSABLE DEVICE (EXENATIDE PEN (5MCG)) [Concomitant]

REACTIONS (4)
  - DEHYDRATION [None]
  - DIARRHOEA [None]
  - NAUSEA [None]
  - VOMITING [None]
